FAERS Safety Report 6116909-7 (Version None)
Quarter: 2009Q1

REPORT INFORMATION
  Report Type: 
  Country: None (occurrence: None)
  Receive Date: 20090314
  Receipt Date: 20090220
  Transmission Date: 20090719
  Serious: No
  Sender: FDA-Public Use
  Company Number: PR-ABBOTT-09P-131-0558520-00

PATIENT
  Sex: Female

DRUGS (5)
  1. HUMIRA [Suspect]
     Indication: RHEUMATOID ARTHRITIS
     Route: 058
     Dates: start: 20090110
  2. ANTIVERT [Concomitant]
     Indication: DIZZINESS
     Route: 048
  3. ATENOLOL [Concomitant]
     Indication: MITRAL VALVE PROLAPSE
     Route: 048
  4. ATENOLOL [Concomitant]
     Indication: BRADYCARDIA
  5. LAMISIL [Concomitant]
     Indication: ANTIFUNGAL TREATMENT
     Route: 048

REACTIONS (1)
  - DIZZINESS [None]
